FAERS Safety Report 4752146-6 (Version None)
Quarter: 2005Q3

REPORT INFORMATION
  Report Type: 
  Country: None (occurrence: None)
  Receive Date: 20050825
  Receipt Date: 20050816
  Transmission Date: 20060218
  Serious: Yes (Hospitalization)
  Sender: FDA-Public Use
  Company Number: BR-JNJFOC-20050804844

PATIENT
  Age: 36 Year
  Sex: Male
  Weight: 90 kg

DRUGS (9)
  1. TYLENOL [Suspect]
  2. TYLENOL [Suspect]
     Indication: DRUG USE FOR UNKNOWN INDICATION
  3. BUDESONIDE [Concomitant]
  4. FEXOFENADINE HCL [Concomitant]
  5. PSEUDOEPHEDRINE HCL [Concomitant]
  6. TOPLEXIL [Concomitant]
  7. TOPLEXIL [Concomitant]
  8. TOPLEXIL [Concomitant]
  9. TOPLEXIL [Concomitant]

REACTIONS (1)
  - CONVULSION [None]
